FAERS Safety Report 7016388-1 (Version None)
Quarter: 2010Q3

REPORT INFORMATION
  Report Type: 
  Country: None (occurrence: None)
  Receive Date: 20100909
  Receipt Date: 20100422
  Transmission Date: 20110219
  Serious: No
  Sender: FDA-Public Use
  Company Number: 2010SP023293

PATIENT
  Age: 48 Year
  Sex: Female

DRUGS (2)
  1. SAPHRIS [Suspect]
     Indication: BIPOLAR DISORDER
     Dosage: 5 MG;BID;SL, 15 MG;QD;SL
     Route: 060
     Dates: start: 20100331, end: 20100406
  2. SAPHRIS [Suspect]
     Indication: BIPOLAR DISORDER
     Dosage: 5 MG;BID;SL, 15 MG;QD;SL
     Route: 060
     Dates: start: 20100407, end: 20100414

REACTIONS (3)
  - ARTHRALGIA [None]
  - JOINT SWELLING [None]
  - NO THERAPEUTIC RESPONSE [None]
